FAERS Safety Report 11309081 (Version 1)
Quarter: 2015Q3

REPORT INFORMATION
  Report Type: Spontaneous
  Country: US (occurrence: US)
  Receive Date: 20150724
  Receipt Date: 20150724
  Transmission Date: 20151125
  Serious: Yes (Other)
  Sender: FDA-Public Use
  Company Number: US-PFIZER INC-2015243803

PATIENT
  Sex: Male
  Weight: 73 kg

DRUGS (4)
  1. VIAGRA [Suspect]
     Active Substance: SILDENAFIL CITRATE
     Dosage: 100 MG (2 TABLETS OF 50 MG), UNK
     Dates: start: 20150719
  2. VIAGRA [Suspect]
     Active Substance: SILDENAFIL CITRATE
     Dosage: 1 DF, UNK
     Dates: start: 201507
  3. VIAGRA [Suspect]
     Active Substance: SILDENAFIL CITRATE
     Dosage: UNK
     Dates: start: 2011
  4. VIAGRA [Suspect]
     Active Substance: SILDENAFIL CITRATE
     Dosage: UNK
     Dates: start: 20150718

REACTIONS (5)
  - Multi-organ failure [Recovered/Resolved]
  - Pancreatic disorder [Recovered/Resolved]
  - Coma [Recovered/Resolved]
  - Drug ineffective [Unknown]
  - Diabetes mellitus [Not Recovered/Not Resolved]
